FAERS Safety Report 10433702 (Version 2)
Quarter: 2014Q4

REPORT INFORMATION
  Report Type: Spontaneous
  Country: US (occurrence: US)
  Receive Date: 20140905
  Receipt Date: 20141007
  Transmission Date: 20150528
  Serious: Yes (Hospitalization)
  Sender: FDA-Public Use
  Company Number: US-SA-2014SA118243

PATIENT
  Age: 32 Year
  Sex: Female

DRUGS (1)
  1. FABRAZYME [Suspect]
     Active Substance: AGALSIDASE BETA
     Indication: FABRY^S DISEASE
     Route: 042
     Dates: start: 20140328

REACTIONS (4)
  - Loss of consciousness [Unknown]
  - Seizure [Unknown]
  - Staphylococcal infection [Unknown]
  - Hypertension [Unknown]

NARRATIVE: CASE EVENT DATE: 2014
